FAERS Safety Report 16137165 (Version 7)
Quarter: 2019Q4

REPORT INFORMATION
  Report Type: Spontaneous
  Country: US (occurrence: US)
  Receive Date: 20190329
  Receipt Date: 20191210
  Transmission Date: 20200122
  Serious: Yes (Congenital Anomaly, Other)
  Sender: FDA-Public Use
  Company Number: PHEH2019US013757

PATIENT
  Sex: Female

DRUGS (1)
  1. ZOFRAN [Suspect]
     Active Substance: ONDANSETRON HYDROCHLORIDE
     Indication: FOETAL EXPOSURE DURING PREGNANCY
     Dosage: MOTHER DOSE: 01 DF, Q8H
     Route: 064

REACTIONS (37)
  - Injury [Not Recovered/Not Resolved]
  - Cardiac murmur [Unknown]
  - Upper respiratory tract infection [Unknown]
  - Rash [Unknown]
  - Tracheobronchitis [Unknown]
  - Musculoskeletal pain [Unknown]
  - Decreased appetite [Unknown]
  - Abdominal pain [Unknown]
  - Pneumonia [Unknown]
  - Birth trauma [Unknown]
  - Arrhythmia neonatal [Unknown]
  - Contusion [Unknown]
  - Malaise [Unknown]
  - Vaginal infection [Unknown]
  - Wheezing [Unknown]
  - Bronchial hyperreactivity [Unknown]
  - Foetal exposure during pregnancy [Unknown]
  - Emotional distress [Unknown]
  - Pyrexia [Unknown]
  - Cough [Unknown]
  - Deformity [Unknown]
  - Jaundice neonatal [Unknown]
  - Pupils unequal [Unknown]
  - Eye injury [Unknown]
  - Ear pain [Unknown]
  - Ventricular septal defect [Unknown]
  - Cephalhaematoma [Unknown]
  - Oropharyngeal pain [Unknown]
  - Atrial septal defect [Unknown]
  - Pain [Unknown]
  - Anhedonia [Unknown]
  - Sinusitis [Unknown]
  - Pruritus [Unknown]
  - Dysuria [Unknown]
  - Congenital anomaly [Unknown]
  - Nasal congestion [Unknown]
  - Pharyngitis [Unknown]
